FAERS Safety Report 8447273-6 (Version None)
Quarter: 2012Q2

REPORT INFORMATION
  Report Type: 
  Country: None (occurrence: None)
  Receive Date: 20120619
  Receipt Date: 20120612
  Transmission Date: 20120825
  Serious: Yes (Hospitalization, Other)
  Sender: FDA-Public Use
  Company Number: PHHY2012FR051130

PATIENT
  Age: 56 Year
  Sex: Male

DRUGS (9)
  1. FUROSEMIDE [Concomitant]
     Dosage: 40 MG, BID
  2. COLCHICINE [Suspect]
     Indication: GOUT
     Dosage: 2 MG DAILY
  3. IMODIUM [Suspect]
     Dosage: 3 DF DAILY
     Route: 048
  4. VOLTAREN [Suspect]
     Dosage: 100 MG, DAILY
     Route: 048
  5. COLCHICINE [Suspect]
     Dosage: 1 MG DAILY
  6. RAMIPRIL [Concomitant]
     Dosage: 10 MG DAILY
  7. ALLOPURINOL [Suspect]
     Dosage: 300 MG DAILY
     Dates: end: 20120525
  8. OMEPRAZOLE [Concomitant]
     Dosage: 20 MG DAILY
  9. BISOPROLOL FUMARATE [Concomitant]
     Dosage: 10 MG DAILY

REACTIONS (13)
  - CHILLS [None]
  - RASH ERYTHEMATOUS [None]
  - WHITE BLOOD CELL COUNT INCREASED [None]
  - EOSINOPHILIA [None]
  - RENAL FAILURE [None]
  - DRUG RASH WITH EOSINOPHILIA AND SYSTEMIC SYMPTOMS [None]
  - MACULE [None]
  - EOSINOPHILIC PUSTULOSIS [None]
  - VERTIGO [None]
  - FACE OEDEMA [None]
  - PYREXIA [None]
  - GOUT [None]
  - OEDEMA PERIPHERAL [None]
